FAERS Safety Report 7053626 (Version 3)
Quarter: 2018Q2

REPORT INFORMATION
  Report Type: Report from Study
  Country: JP (occurrence: JP)
  Receive Date: 20090717
  Receipt Date: 20180529
  Transmission Date: 20180711
  Serious: Yes (Other)
  Sender: FDA-Public Use
  Company Number: PHHY2009JP15868

PATIENT
  Age: 67 Year
  Sex: Male

DRUGS (7)
  1. TASIGNA [Suspect]
     Active Substance: NILOTINIB
     Indication: CHRONIC MYELOID LEUKAEMIA
     Dosage: 800 MG, QD
     Route: 048
     Dates: start: 20090402, end: 20090409
  2. TASIGNA [Suspect]
     Active Substance: NILOTINIB
     Dosage: 800 MG, QD
     Route: 048
     Dates: start: 20090422
  3. TASIGNA [Suspect]
     Active Substance: NILOTINIB
     Dosage: 400 MG, BID
     Route: 048
     Dates: start: 20090610
  4. CRAVIT [Concomitant]
     Active Substance: LEVOFLOXACIN
     Indication: PRODUCT USED FOR UNKNOWN INDICATION
     Dosage: 300 MG, UNK
     Route: 048
     Dates: start: 20090405, end: 20090416
  5. SELBEX [Concomitant]
     Active Substance: TEPRENONE
     Indication: PRODUCT USED FOR UNKNOWN INDICATION
     Dosage: 150 MG, UNK
     Route: 048
     Dates: start: 20090407, end: 20090412
  6. TASIGNA [Suspect]
     Active Substance: NILOTINIB
     Dosage: 800 MG, QD
     Route: 048
     Dates: start: 20090416, end: 20090416
  7. DASATINIB. [Suspect]
     Active Substance: DASATINIB
     Indication: PRODUCT USED FOR UNKNOWN INDICATION
     Route: 065

REACTIONS (12)
  - Myalgia [Unknown]
  - Electrocardiogram QT prolonged [Recovering/Resolving]
  - Hyperbilirubinaemia [Recovered/Resolved]
  - Blood glucose increased [Recovering/Resolving]
  - Pyrexia [Unknown]
  - Gastrointestinal disorder [Recovered/Resolved]
  - Abdominal discomfort [Recovering/Resolving]
  - Pain in extremity [Not Recovered/Not Resolved]
  - Hepatic function abnormal [Recovering/Resolving]
  - C-reactive protein increased [Not Recovered/Not Resolved]
  - Hyperbilirubinaemia [Recovering/Resolving]
  - Rash generalised [Unknown]

NARRATIVE: CASE EVENT DATE: 20090406
